FAERS Safety Report 14775340 (Version 1)
Quarter: 2018Q2

REPORT INFORMATION
  Report Type: Spontaneous
  Country: JP (occurrence: JP)
  Receive Date: 20180418
  Receipt Date: 20180418
  Transmission Date: 20180711
  Serious: Yes (Other)
  Sender: FDA-Public Use
  Company Number: JP-PFIZER INC-2018150539

PATIENT

DRUGS (1)
  1. METHOTREXATE. [Suspect]
     Active Substance: METHOTREXATE
     Indication: ACUTE LYMPHOCYTIC LEUKAEMIA
     Dosage: UNK
     Dates: start: 20180409

REACTIONS (4)
  - Anuria [Recovering/Resolving]
  - Acute kidney injury [Unknown]
  - Drug level increased [Unknown]
  - Oedema [Unknown]

NARRATIVE: CASE EVENT DATE: 201804
